FAERS Safety Report 7491870-1 (Version None)
Quarter: 2011Q1

REPORT INFORMATION
  Report Type: 
  Country: None (occurrence: None)
  Receive Date: 20110318
  Receipt Date: 20100928
  Transmission Date: 20110831
  Serious: Yes (Other)
  Sender: FDA-Public Use
  Company Number: 2-0910-78

PATIENT
  Age: 17 Year
  Sex: Female

DRUGS (3)
  1. T-GEL SHAMPOO [Concomitant]
  2. DERMA-SMOOTHE/FS [Suspect]
     Indication: SEBORRHOEIC DERMATITIS
     Dosage: TOPICAL
     Route: 061
  3. 1% LOPROX [Concomitant]

REACTIONS (1)
  - ALOPECIA [None]
